FAERS Safety Report 4335808-4 (Version None)
Quarter: 2004Q2

REPORT INFORMATION
  Report Type: 
  Country: None (occurrence: None)
  Receive Date: 20040405
  Receipt Date: 20020909
  Transmission Date: 20050107
  Serious: Yes (Life-Threatening, Hospitalization)
  Sender: FDA-Public Use
  Company Number: 2002IC000085

PATIENT
  Age: 54 Year
  Sex: Male
  Weight: 84 kg

DRUGS (5)
  1. FLUOROURACIL [Suspect]
     Dosage: 800 MG; D1-5 Q28; INTRAVENOUS; 760 MG;D1-3 Q28; INTRAVENOUS
     Route: 042
     Dates: start: 20001120, end: 20010319
  2. LEUCOVORIN CALCIUM [Suspect]
     Dosage: 40 MG; D1-5 Q28; INTRAVENOUS; 35 MG; D1-3 Q28; INTRAVENOUS
     Route: 042
     Dates: start: 20001120, end: 20010319
  3. SERTRALINE [Concomitant]
  4. HYDROCHLORIDE [Concomitant]
  5. LANSOPRAZOLE [Concomitant]

REACTIONS (4)
  - COLLAPSE OF LUNG [None]
  - LUNG CONSOLIDATION [None]
  - NEUTROPENIA [None]
  - PNEUMONIA [None]
